FAERS Safety Report 8974234 (Version 1)
Quarter: 2012Q4

REPORT INFORMATION
  Report Type: Spontaneous
  Country: DK (occurrence: None)
  Receive Date: 20121213
  Receipt Date: 20121213
  Transmission Date: 20130627
  Serious: Yes (Other)
  Sender: FDA-Public Use
  Company Number: 906927

PATIENT
  Age: 65 Year
  Sex: Male

DRUGS (9)
  1. CALCIUM FOLINATE [Suspect]
     Indication: METASTATIC COLON CANCER
     Dates: start: 20081128, end: 20090501
  2. OXALIPLATIN [Suspect]
     Indication: METASTATIC COLON CANCER
     Dates: start: 20081128, end: 20090406
  3. OXALIPLATIN [Suspect]
     Indication: METASTATIC COLON CANCER
     Dates: start: 20081128, end: 20090406
  4. OXALIPLATIN [Suspect]
     Indication: METASTATIC COLON CANCER
     Dates: start: 20081128, end: 20090501
  5. OXALIPLATIN [Suspect]
     Indication: METASTATIC COLON CANCER
     Dates: start: 20081128, end: 20090501
  6. FLUOROURACIL [Suspect]
     Indication: METASTATIC COLON CANCER
     Route: 040
     Dates: start: 20081128, end: 20090501
  7. FLUOROURACIL [Suspect]
     Indication: METASTATIC COLON CANCER
     Route: 040
     Dates: start: 20081128, end: 20090501
  8. FLUOROURACIL [Suspect]
     Indication: METASTATIC COLON CANCER
  9. FLUOROURACIL [Suspect]
     Indication: METASTATIC COLON CANCER

REACTIONS (5)
  - Fine motor delay [None]
  - Peripheral sensory neuropathy [None]
  - Paraesthesia [None]
  - Paraesthesia [None]
  - Thrombocytopenia [None]
